FAERS Safety Report 14670009 (Version 1)
Quarter: 2018Q1

REPORT INFORMATION
  Report Type: Spontaneous
  Country: CH (occurrence: CH)
  Receive Date: 20180322
  Receipt Date: 20180322
  Transmission Date: 20180509
  Serious: Yes (Other)
  Sender: FDA-Public Use
  Company Number: CH-TEVA-2018-CH-867803

PATIENT
  Age: 41 Year
  Sex: Male

DRUGS (5)
  1. PANTOPRAZOLE [Suspect]
     Active Substance: PANTOPRAZOLE
     Indication: PRODUCT USED FOR UNKNOWN INDICATION
     Route: 048
     Dates: start: 2008
  2. TAMSULOSIN SANDOZ [Suspect]
     Active Substance: TAMSULOSIN
     Indication: URINARY RETENTION
     Route: 048
     Dates: start: 201705
  3. DEPRIVITA [Suspect]
     Active Substance: HYPERICUM PERFORATUM
     Indication: DEPRESSION
     Route: 048
     Dates: start: 2017
  4. VALTAN [Suspect]
     Active Substance: VALSARTAN
     Indication: HYPERTENSION
     Route: 048
  5. PROSTAGUTT UNO [Suspect]
     Active Substance: HERBALS\SAW PALMETTO
     Indication: URINARY RETENTION
     Route: 048

REACTIONS (1)
  - Colitis microscopic [Unknown]

NARRATIVE: CASE EVENT DATE: 201712
